FAERS Safety Report 16925383 (Version 2)
Quarter: 2019Q4

REPORT INFORMATION
  Report Type: Report from Study
  Country: US (occurrence: US)
  Receive Date: 20191016
  Receipt Date: 20191127
  Transmission Date: 20200122
  Serious: Yes (Hospitalization, Other)
  Sender: FDA-Public Use
  Company Number: US-GLAXOSMITHKLINE-2019-TSO02353-US

PATIENT
  Age: 76 Year
  Sex: Female
  Weight: 74 kg

DRUGS (4)
  1. NIRAPARIB [Suspect]
     Active Substance: NIRAPARIB
     Indication: FALLOPIAN TUBE CANCER
     Dosage: 300 MG, HS WITHOUT FOOD
     Route: 065
     Dates: start: 20190621, end: 20190709
  2. NIRAPARIB [Suspect]
     Active Substance: NIRAPARIB
     Dosage: 200 MG, QD
     Route: 048
     Dates: start: 20191010
  3. BABY ASPIRIN [Concomitant]
     Active Substance: ASPIRIN
     Indication: PRODUCT USED FOR UNKNOWN INDICATION
     Dosage: UNK
  4. NIRAPARIB [Suspect]
     Active Substance: NIRAPARIB
     Dosage: 200 MG, PM WITH FOOD
     Route: 065
     Dates: start: 20190710, end: 20190929

REACTIONS (25)
  - Dehydration [Unknown]
  - Abdominal pain upper [Recovered/Resolved]
  - Decreased appetite [Unknown]
  - Stress [Recovered/Resolved]
  - Nausea [Recovered/Resolved]
  - Headache [Recovered/Resolved]
  - Gastric infection [Unknown]
  - Blood pressure decreased [Unknown]
  - Panic attack [Unknown]
  - Carbohydrate antigen 125 increased [Unknown]
  - Constipation [Recovering/Resolving]
  - Diarrhoea [Recovered/Resolved]
  - Cold sweat [Recovered/Resolved]
  - Heart rate increased [Recovered/Resolved]
  - Fatigue [Not Recovered/Not Resolved]
  - Vomiting [Recovered/Resolved]
  - Weight decreased [Unknown]
  - Hospice care [Unknown]
  - Asthenia [Unknown]
  - Chest pain [Recovered/Resolved]
  - Oropharyngeal pain [Recovered/Resolved]
  - Neoplasm progression [Not Recovered/Not Resolved]
  - Blood pressure increased [Recovered/Resolved]
  - Insomnia [Recovering/Resolving]
  - Headache [Recovered/Resolved]

NARRATIVE: CASE EVENT DATE: 2019
